FAERS Safety Report 23154816 (Version 5)
Quarter: 2024Q1

REPORT INFORMATION
  Report Type: Spontaneous
  Country: AR (occurrence: AR)
  Receive Date: 20231107
  Receipt Date: 20240113
  Transmission Date: 20240410
  Serious: Yes (Death, Hospitalization, Other)
  Sender: FDA-Public Use
  Company Number: AR-002147023-NVSC2023AR237273

PATIENT
  Age: 74 Year
  Sex: Male

DRUGS (1)
  1. GLYCOPYRRONIUM\INDACATEROL [Suspect]
     Active Substance: GLYCOPYRRONIUM\INDACATEROL
     Indication: Chronic obstructive pulmonary disease
     Dosage: QD (CAPSULE OF 110/50)

REACTIONS (8)
  - Lung adenocarcinoma [Fatal]
  - Atelectasis [Unknown]
  - Lung neoplasm malignant [Recovering/Resolving]
  - Postoperative thoracic procedure complication [Unknown]
  - Musculoskeletal chest pain [Unknown]
  - Dyspnoea [Unknown]
  - Fatigue [Unknown]
  - Agitation [Unknown]

NARRATIVE: CASE EVENT DATE: 20230901
